FAERS Safety Report 6533472-7 (Version None)
Quarter: 2010Q1

REPORT INFORMATION
  Report Type: 
  Country: None (occurrence: None)
  Receive Date: 20100111
  Receipt Date: 20091111
  Transmission Date: 20100710
  Serious: No
  Sender: FDA-Public Use
  Company Number: A0817275A

PATIENT
  Sex: Male
  Weight: 129.5 kg

DRUGS (10)
  1. REQUIP XL [Suspect]
     Indication: RESTLESS LEGS SYNDROME
     Dosage: 4MG AT NIGHT
     Route: 048
     Dates: end: 20090501
  2. REQUIP [Suspect]
     Indication: RESTLESS LEGS SYNDROME
     Dosage: 2MG AT NIGHT
     Route: 048
  3. NEURONTIN [Concomitant]
  4. SINEMET [Concomitant]
  5. ALLOPURINOL [Concomitant]
  6. BUMEX [Concomitant]
  7. METOPROLOL [Concomitant]
  8. PROZAC [Concomitant]
  9. XENICAL [Concomitant]
  10. GLUCOPHAGE [Concomitant]

REACTIONS (1)
  - OBSESSIVE-COMPULSIVE DISORDER [None]
